FAERS Safety Report 12403372 (Version 1)
Quarter: 2016Q2

REPORT INFORMATION
  Report Type: Spontaneous
  Country: US (occurrence: US)
  Receive Date: 20160525
  Receipt Date: 20160525
  Transmission Date: 20160815
  Serious: No
  Sender: FDA-Public Use
  Company Number: US-TEVA-662512USA

PATIENT
  Age: 63 Year
  Sex: Male
  Weight: 90.8 kg

DRUGS (25)
  1. DILTIAZEM [Concomitant]
     Active Substance: DILTIAZEM
  2. FOLIC ACID. [Concomitant]
     Active Substance: FOLIC ACID
  3. INSULIN [Concomitant]
     Active Substance: INSULIN NOS
  4. ALBUTEROL. [Concomitant]
     Active Substance: ALBUTEROL
  5. ELIQUIS [Concomitant]
     Active Substance: APIXABAN
  6. HYDROXYCHLOROQUINE [Concomitant]
     Active Substance: HYDROXYCHLOROQUINE
  7. LISINOPRIL. [Concomitant]
     Active Substance: LISINOPRIL
  8. METFORMIN [Concomitant]
     Active Substance: METFORMIN HYDROCHLORIDE
  9. VITAMIN E [Concomitant]
     Active Substance: .ALPHA.-TOCOPHEROL
  10. MONTELUKAST [Concomitant]
     Active Substance: MONTELUKAST SODIUM
  11. COMBIVENT [Concomitant]
     Active Substance: ALBUTEROL SULFATE\IPRATROPIUM BROMIDE
  12. ADVAIR HFA [Concomitant]
     Active Substance: FLUTICASONE PROPIONATE\SALMETEROL XINAFOATE
  13. VENLAFAXINE [Concomitant]
     Active Substance: VENLAFAXINE HYDROCHLORIDE
  14. GRANIX [Suspect]
     Active Substance: TBO-FILGRASTIM
     Indication: NEUTROPENIA
     Route: 065
     Dates: start: 20160519
  15. ASPIRIN. [Concomitant]
     Active Substance: ASPIRIN
  16. CELLCEPT [Concomitant]
     Active Substance: MYCOPHENOLATE MOFETIL\MYCOPHENOLATE MOFETIL HYDROCHLORIDE
  17. LASIX [Concomitant]
     Active Substance: FUROSEMIDE
  18. VITAMIN C [Concomitant]
     Active Substance: ASCORBIC ACID
  19. BUPROPION. [Concomitant]
     Active Substance: BUPROPION
  20. VITAMIN D [Concomitant]
     Active Substance: CHOLECALCIFEROL
  21. OMEPRAZOLE. [Concomitant]
     Active Substance: OMEPRAZOLE
  22. GABAPENTIN. [Concomitant]
     Active Substance: GABAPENTIN
  23. NPH INSULIN [Concomitant]
     Active Substance: INSULIN BEEF
  24. PREDNISONE. [Concomitant]
     Active Substance: PREDNISONE
  25. TRAMADOL. [Concomitant]
     Active Substance: TRAMADOL

REACTIONS (2)
  - Arthralgia [Not Recovered/Not Resolved]
  - Pelvic pain [Not Recovered/Not Resolved]

NARRATIVE: CASE EVENT DATE: 20160520
